FAERS Safety Report 8770090 (Version 1)
Quarter: 2012Q4

REPORT INFORMATION
  Report Type: Report from Study
  Country: CA (occurrence: CA)
  Receive Date: 20120906
  Receipt Date: 20120906
  Transmission Date: 20130627
  Serious: Yes (Other)
  Sender: FDA-Public Use
  Company Number: CA-JNJFOC-20120813936

PATIENT
  Age: 59 None
  Sex: Female
  Weight: 94 kg

DRUGS (4)
  1. REMICADE [Suspect]
     Indication: RHEUMATOID ARTHRITIS
     Dosage: on infliximab for 9 years
     Route: 042
  2. GRAVOL [Concomitant]
     Route: 065
  3. CLARITHROMYCIN [Concomitant]
     Route: 065
  4. TYLENOL [Concomitant]
     Route: 065

REACTIONS (4)
  - Lower respiratory tract infection [Unknown]
  - Joint injury [Unknown]
  - Local swelling [Unknown]
  - Pain in extremity [Unknown]
